FAERS Safety Report 6250148-4 (Version None)
Quarter: 2009Q2

REPORT INFORMATION
  Report Type: 
  Country: None (occurrence: None)
  Receive Date: 20090626
  Receipt Date: 20090615
  Transmission Date: 20091009
  Serious: Yes (Other)
  Sender: FDA-Public Use
  Company Number: 2009SP013088

PATIENT
  Age: 52 Year
  Sex: Female

DRUGS (2)
  1. MIRALAX [Suspect]
     Indication: DRUG USE FOR UNKNOWN INDICATION
     Dosage: 17 GM;BID;PO
     Route: 048
     Dates: start: 20090608
  2. CALAN [Concomitant]

REACTIONS (2)
  - MUSCLE CONTRACTURE [None]
  - TRISMUS [None]
